FAERS Safety Report 14355481 (Version 1)
Quarter: 2018Q1

REPORT INFORMATION
  Report Type: Report from Study
  Country: SG (occurrence: SG)
  Receive Date: 20180105
  Receipt Date: 20180105
  Transmission Date: 20180509
  Serious: Yes (Death, Life-Threatening)
  Sender: FDA-Public Use
  Company Number: SG-GLAXOSMITHKLINE-SG2018GSK000259

PATIENT
  Age: 4 Year
  Sex: Male
  Weight: 14 kg

DRUGS (7)
  1. ZANAMIVIR [Suspect]
     Active Substance: ZANAMIVIR
     Indication: INFLUENZA
     Dosage: 200 MG, UNK
     Route: 042
     Dates: start: 20171227, end: 20171227
  2. ACICLOVIR [Concomitant]
     Active Substance: ACYCLOVIR
     Indication: MENINGOENCEPHALITIS HERPETIC
     Dosage: 210 MG, TID
     Route: 042
     Dates: start: 20171227
  3. TAMIFLU [Concomitant]
     Active Substance: OSELTAMIVIR PHOSPHATE
     Indication: INFLUENZA
  4. ZANAMIVIR [Suspect]
     Active Substance: ZANAMIVIR
     Dosage: 80 MG, UNK
     Dates: start: 20171228, end: 20171228
  5. HYDROCORTISONE. [Concomitant]
     Active Substance: HYDROCORTISONE
     Indication: ENCEPHALITIS
     Dosage: 70 MG, QID
     Route: 042
     Dates: start: 20171227
  6. OMEPRAZOLE. [Concomitant]
     Active Substance: OMEPRAZOLE
     Indication: PROPHYLAXIS
     Dosage: 15 MG, TID
     Route: 042
     Dates: start: 20171227
  7. CIPROFLOXACIN. [Concomitant]
     Active Substance: CIPROFLOXACIN
     Indication: ENCEPHALITIS
     Dosage: 140 MG, TID
     Route: 042
     Dates: start: 20171227

REACTIONS (1)
  - Transaminases increased [Fatal]

NARRATIVE: CASE EVENT DATE: 20171228
